FAERS Safety Report 12979116 (Version 2)
Quarter: 2017Q2

REPORT INFORMATION
  Report Type: Spontaneous
  Country: JP (occurrence: JP)
  Receive Date: 20161128
  Receipt Date: 20170502
  Transmission Date: 20170830
  Serious: Yes (Other)
  Sender: FDA-Public Use
  Company Number: JP-GLAXOSMITHKLINE-JP2016JPN145738

PATIENT
  Age: 77 Year
  Sex: Male

DRUGS (17)
  1. ZYLORIC [Suspect]
     Active Substance: ALLOPURINOL
     Dosage: 100 MG, 1D
     Route: 048
     Dates: start: 201207
  2. CADEX (JAPAN) [Concomitant]
     Dosage: UNK
  3. PLAVIX [Suspect]
     Active Substance: CLOPIDOGREL BISULFATE
     Dosage: 3 DF, 1D
     Route: 048
  4. ADALAT CC [Concomitant]
     Active Substance: NIFEDIPINE
     Dosage: 60 MG, 1D
  5. EBASTEL OD [Concomitant]
     Dosage: 10 MG, 1D
  6. ZANTAC [Suspect]
     Active Substance: RANITIDINE HYDROCHLORIDE
     Dosage: 150 MG, QD
     Route: 048
     Dates: start: 20110412, end: 20110418
  7. URALYT [Concomitant]
     Active Substance: POTASSIUM CITRATE\TRISODIUM CITRATE DIHYDRATE
     Dosage: 4 DF, 1D
  8. BAYASPIRIN [Suspect]
     Active Substance: ASPIRIN
     Indication: TRANSIENT ISCHAEMIC ATTACK
     Dosage: 100 MG, QD
     Route: 048
     Dates: start: 20110412, end: 20110418
  9. SAMSCA [Concomitant]
     Active Substance: TOLVAPTAN
     Dosage: UNK
  10. AVAPRO [Concomitant]
     Active Substance: IRBESARTAN
     Dosage: 100 MG, 1D
  11. ZYLORIC [Suspect]
     Active Substance: ALLOPURINOL
     Indication: HERPES SIMPLEX
     Dosage: 50 MG, 1D
     Route: 048
  12. FLUITRAN [Concomitant]
     Active Substance: TRICHLORMETHIAZIDE
     Dosage: UNK
  13. PLETAAL [Concomitant]
     Active Substance: CILOSTAZOL
     Dosage: UNK
  14. CARDENALIN [Concomitant]
     Active Substance: DOXAZOSIN MESYLATE
     Dosage: 2 MG, 1D
  15. ZYLORIC [Suspect]
     Active Substance: ALLOPURINOL
     Dosage: 50 MG, 1D
     Route: 048
     Dates: start: 2012
  16. NATRIX [Concomitant]
     Active Substance: INDAPAMIDE
     Dosage: 1 MG, 1D
  17. FEBURIC [Concomitant]
     Active Substance: FEBUXOSTAT
     Dosage: UNK

REACTIONS (8)
  - Renal impairment [Unknown]
  - Drug eruption [Recovered/Resolved]
  - Blood creatinine increased [Recovered/Resolved]
  - Off label use [Unknown]
  - Erythema [Recovered/Resolved]
  - Rash [Recovered/Resolved]
  - Product use in unapproved indication [Unknown]
  - Pruritus [Recovered/Resolved]

NARRATIVE: CASE EVENT DATE: 201104
